FAERS Safety Report 16589901 (Version 2)
Quarter: 2020Q4

REPORT INFORMATION
  Report Type: Spontaneous
  Country: US (occurrence: US)
  Receive Date: 20190718
  Receipt Date: 20201229
  Transmission Date: 20210113
  Serious: No
  Sender: FDA-Public Use
  Company Number: US-NVP-000011

PATIENT
  Age: 5 Year

DRUGS (3)
  1. EVEROLIMUS. [Concomitant]
     Active Substance: EVEROLIMUS
     Indication: PRODUCT USED FOR UNKNOWN INDICATION
     Dosage: 2 TABLET TAKEN DAILY
     Route: 048
  2. SIROLIMUS. [Suspect]
     Active Substance: SIROLIMUS
     Indication: PRODUCT USED FOR UNKNOWN INDICATION
     Dosage: TAKEN 4 ML IN MORNING
     Route: 048
     Dates: start: 20190711
  3. SALBUTAMOL [Concomitant]
     Active Substance: ALBUTEROL
     Indication: PRODUCT USED FOR UNKNOWN INDICATION
     Dosage: AS NEEDED

REACTIONS (2)
  - Product administered to patient of inappropriate age [Unknown]
  - Product administration error [Unknown]

NARRATIVE: CASE EVENT DATE: 20190711
